FAERS Safety Report 6264242-5 (Version None)
Quarter: 2009Q3

REPORT INFORMATION
  Report Type: 
  Country: None (occurrence: None)
  Receive Date: 20090706
  Receipt Date: 20080924
  Transmission Date: 20100115
  Serious: Yes (Hospitalization)
  Sender: FDA-Public Use
  Company Number: 588626

PATIENT
  Age: 43 Year
  Sex: Female

DRUGS (3)
  1. MYCOPHENOLATE MOFETIL [Suspect]
     Indication: SYSTEMIC LUPUS ERYTHEMATOSUS
  2. HYDROXYCHLOROQUINE SULFATE [Concomitant]
  3. MULTIPLE UNSPECIFIED MEDICATIONS (GENERIC UNKNOWN) [Concomitant]

REACTIONS (1)
  - WOUND DEHISCENCE [None]
